FAERS Safety Report 6744528-8 (Version None)
Quarter: 2010Q2

REPORT INFORMATION
  Report Type: 
  Country: None (occurrence: None)
  Receive Date: 20100527
  Receipt Date: 20100521
  Transmission Date: 20101027
  Serious: Yes (Other)
  Sender: FDA-Public Use
  Company Number: BR-ABBOTT-10P-020-0646742-00

PATIENT
  Sex: Female
  Weight: 70 kg

DRUGS (13)
  1. HUMIRA [Suspect]
     Indication: RHEUMATOID ARTHRITIS
     Route: 058
     Dates: start: 20100201
  2. METHOTREXATE [Concomitant]
     Indication: RHEUMATOID ARTHRITIS
     Route: 048
     Dates: start: 20060101
  3. FOLIC ACID [Concomitant]
     Indication: ANAEMIA PROPHYLAXIS
     Route: 048
     Dates: start: 20060101
  4. IRON SULFATETHIAMIN COMPOUND TAB [Concomitant]
     Indication: ANAEMIA PROPHYLAXIS
     Route: 048
     Dates: start: 20060101
  5. OS-CAL D [Concomitant]
     Indication: OSTEOPENIA
     Route: 048
     Dates: start: 20060101
  6. RIVOTRIL [Concomitant]
     Indication: INSOMNIA
     Route: 048
     Dates: start: 20100101
  7. CORTICOID [Concomitant]
     Indication: RHEUMATOID ARTHRITIS
     Route: 048
     Dates: start: 20050101
  8. CELAFAZALINA [Concomitant]
     Indication: DEPRESSION
     Route: 048
     Dates: start: 20100101
  9. ARADOIS H [Concomitant]
     Indication: HYPERTENSION
     Dosage: 50 MG X 1/2-TABLET
     Route: 048
  10. OMEPRAZOLE [Concomitant]
     Indication: GASTRIC DISORDER
     Route: 048
  11. PARACETAMOL [Concomitant]
     Indication: PAIN
     Route: 048
     Dates: start: 20050101
  12. TRAMADOL HYDROCHLORIDE [Concomitant]
     Indication: PAIN
     Route: 048
     Dates: start: 20080101
  13. SUSTRALE [Concomitant]
     Indication: ANGINA PECTORIS
     Route: 048
     Dates: start: 20070101

REACTIONS (7)
  - ABDOMINAL PAIN [None]
  - BLINDNESS [None]
  - DIZZINESS [None]
  - MEMORY IMPAIRMENT [None]
  - MONOPLEGIA [None]
  - SCIATICA [None]
  - VISION BLURRED [None]
